FAERS Safety Report 7607759-0 (Version None)
Quarter: 2011Q3

REPORT INFORMATION
  Report Type: 
  Country: None (occurrence: None)
  Receive Date: 20110713
  Receipt Date: 20110615
  Transmission Date: 20111222
  Serious: Yes (Other)
  Sender: FDA-Public Use
  Company Number: PHHY2011IT19000

PATIENT
  Sex: Female

DRUGS (4)
  1. NORVASC [Concomitant]
     Dosage: 5 MG/DAY
  2. LASIX [Concomitant]
     Dosage: 25 MG/DAY
  3. CARDURA [Concomitant]
     Dosage: 12 MG/DAY
  4. VALSARTAN  AND HYDROCHLOROTHIAZIDE [Suspect]
     Indication: ESSENTIAL HYPERTENSION
     Dosage: 1 DF (320 MG VALSARTAN/ 25 MG HYDROCHLOROTHIAZIDE) QD
     Route: 048
     Dates: start: 20101222, end: 20110104

REACTIONS (5)
  - MUSCLE CONTRACTURE [None]
  - OSTEITIS [None]
  - ASTHENIA [None]
  - MYALGIA [None]
  - SOFT TISSUE INFLAMMATION [None]
